FAERS Safety Report 9825668 (Version 2)
Quarter: 2014Q1

REPORT INFORMATION
  Report Type: Report from Study
  Country: KR (occurrence: KR)
  Receive Date: 20140117
  Receipt Date: 20140204
  Transmission Date: 20141002
  Serious: Yes (Hospitalization)
  Sender: FDA-Public Use
  Company Number: KR-SA-2014SA003230

PATIENT
  Age: 76 Year
  Sex: Female
  Weight: 50 kg

DRUGS (3)
  1. LANTUS [Suspect]
     Indication: DIABETES MELLITUS
     Dosage: DOSE:6 UNIT(S)
     Route: 058
     Dates: start: 20131127
  2. PIOGLITAZONE [Concomitant]
     Indication: DIABETES MELLITUS
     Route: 048
     Dates: start: 20131127
  3. GLUPA [Concomitant]
     Indication: DIABETES MELLITUS
     Route: 048
     Dates: start: 20131127

REACTIONS (3)
  - Gastrointestinal disorder [Unknown]
  - Volvulus [Unknown]
  - Abdominal pain [Unknown]
